FAERS Safety Report 8873185 (Version 1)
Quarter: 2012Q4

REPORT INFORMATION
  Report Type: Report from Study
  Country: US (occurrence: US)
  Receive Date: 20121030
  Receipt Date: 20121030
  Transmission Date: 20130627
  Serious: Yes (Other)
  Sender: FDA-Public Use
  Company Number: US-ABBOTT-12P-163-0997071-00

PATIENT
  Sex: Female

DRUGS (8)
  1. HUMIRA [Suspect]
     Indication: RHEUMATOID ARTHRITIS
     Route: 058
     Dates: start: 2009, end: 2010
  2. HUMIRA [Suspect]
     Route: 058
     Dates: start: 2010, end: 201105
  3. HUMIRA [Suspect]
     Route: 058
     Dates: start: 201207
  4. FOLIC ACID [Concomitant]
     Indication: PRODUCT USED FOR UNKNOWN INDICATION
  5. PREDNISONE [Concomitant]
     Indication: PRODUCT USED FOR UNKNOWN INDICATION
  6. PRENATAL VITAMINS [Concomitant]
     Indication: PRODUCT USED FOR UNKNOWN INDICATION
  7. METHOTREXATE [Concomitant]
     Indication: RHEUMATOID ARTHRITIS
     Dates: end: 2010
  8. METHOTREXATE [Concomitant]
     Dates: start: 2010, end: 201105

REACTIONS (2)
  - Gestational hypertension [Recovered/Resolved]
  - Caesarean section [Unknown]
